FAERS Safety Report 12130707 (Version 1)
Quarter: 2016Q1

REPORT INFORMATION
  Report Type: Spontaneous
  Country: BR (occurrence: BR)
  Receive Date: 20160301
  Receipt Date: 20160301
  Transmission Date: 20160526
  Serious: Yes (Life-Threatening, Other)
  Sender: FDA-Public Use
  Company Number: BR-JNJFOC-20160226422

PATIENT
  Sex: Female

DRUGS (1)
  1. REMINYL [Suspect]
     Active Substance: GALANTAMINE
     Indication: DEMENTIA ALZHEIMER^S TYPE
     Route: 065

REACTIONS (7)
  - Activities of daily living impaired [Recovering/Resolving]
  - Unresponsive to stimuli [Recovered/Resolved]
  - Fall [Recovering/Resolving]
  - Eating disorder [Recovered/Resolved]
  - Hyporeflexia [Recovered/Resolved]
  - Drug dose omission [Unknown]
  - Abasia [Not Recovered/Not Resolved]
